FAERS Safety Report 6896003-8 (Version None)
Quarter: 2010Q3

REPORT INFORMATION
  Report Type: 
  Country: None (occurrence: None)
  Receive Date: 20100802
  Receipt Date: 20100721
  Transmission Date: 20110219
  Serious: Yes (Hospitalization, Other)
  Sender: FDA-Public Use
  Company Number: A0733506A

PATIENT
  Age: 51 Year
  Sex: Male
  Weight: 111.4 kg

DRUGS (6)
  1. AVANDIA [Suspect]
     Route: 065
     Dates: start: 20020307, end: 20070301
  2. FLONASE [Concomitant]
  3. AMARYL [Concomitant]
     Dosage: 2MG PER DAY
  4. ALLEGRA D 24 HOUR [Concomitant]
  5. TOPROL-XL [Concomitant]
     Dates: start: 20050801
  6. NITROGLYCERIN [Concomitant]
     Dates: start: 20050801

REACTIONS (2)
  - CORONARY ARTERY DISEASE [None]
  - MYOCARDIAL INFARCTION [None]
